FAERS Safety Report 17936838 (Version 2)
Quarter: 2020Q2

REPORT INFORMATION
  Report Type: Spontaneous
  Country: US (occurrence: US)
  Receive Date: 20200624
  Receipt Date: 20200629
  Transmission Date: 20200714
  Serious: No
  Sender: FDA-Public Use
  Company Number: US-PFIZER INC-2020236851

PATIENT
  Age: 9 Year
  Sex: Male
  Weight: 18.14 kg

DRUGS (2)
  1. GENOTROPIN [Suspect]
     Active Substance: SOMATROPIN
     Indication: GROWTH HORMONE DEFICIENCY
     Dosage: 0.7 MG, 1X/DAY (0.7 MG INJECTION AT NIGHT ROTATING SITES LEGS)
     Dates: start: 20200612
  2. GENOTROPIN [Suspect]
     Active Substance: SOMATROPIN
     Indication: SEPTO-OPTIC DYSPLASIA
     Dosage: UNK

REACTIONS (3)
  - Device dispensing error [Unknown]
  - Device issue [Unknown]
  - Skin laceration [Unknown]

NARRATIVE: CASE EVENT DATE: 20200612
